FAERS Safety Report 6220030-7 (Version None)
Quarter: 2009Q2

REPORT INFORMATION
  Report Type: 
  Country: None (occurrence: None)
  Receive Date: 20090609
  Receipt Date: 20090528
  Transmission Date: 20091009
  Serious: Yes (Hospitalization)
  Sender: FDA-Public Use
  Company Number: PHHY2009ES21877

PATIENT
  Age: 80 Year
  Sex: Female

DRUGS (2)
  1. DIGARIL [Suspect]
     Dosage: UNK
     Route: 048
     Dates: start: 20070101
  2. EUGLUCON [Suspect]
     Dosage: UNK
     Route: 048
     Dates: start: 20070101

REACTIONS (2)
  - CHOLESTASIS [None]
  - HEPATIC ENZYME INCREASED [None]
